FAERS Safety Report 12448549 (Version 1)
Quarter: 2016Q2

REPORT INFORMATION
  Report Type: Spontaneous
  Country: US (occurrence: US)
  Receive Date: 20160608
  Receipt Date: 20160608
  Transmission Date: 20160815
  Serious: Yes (Death, Other)
  Sender: FDA-Public Use
  Company Number: US-OTSUKA-2016_012478

PATIENT
  Age: 70 Year
  Sex: Male

DRUGS (2)
  1. SAMSCA [Suspect]
     Active Substance: TOLVAPTAN
     Indication: LUNG CANCER METASTATIC
  2. SAMSCA [Suspect]
     Active Substance: TOLVAPTAN
     Indication: BLOOD SODIUM DECREASED
     Dosage: 15 MG, QD
     Route: 048
     Dates: start: 20160427, end: 20160519

REACTIONS (2)
  - Lung cancer metastatic [Fatal]
  - Product use issue [Unknown]

NARRATIVE: CASE EVENT DATE: 20160427
